FAERS Safety Report 4383841-9 (Version None)
Quarter: 2004Q2

REPORT INFORMATION
  Report Type: 
  Country: None (occurrence: None)
  Receive Date: 20040615
  Receipt Date: 20030512
  Transmission Date: 20050107
  Serious: Yes (Hospitalization)
  Sender: FDA-Public Use
  Company Number: 2002US005124

PATIENT

DRUGS (9)
  1. PROGRAF [Suspect]
     Indication: RENAL TRANSPLANT
     Dosage: 1.8 ML, TID, ORAL
     Route: 048
  2. SIROLIMUS (SIROLIMUS) [Concomitant]
  3. PREDNISONE TAB [Concomitant]
  4. ISRADIPINE (ISRADIPINE) [Concomitant]
  5. ZANTAC [Concomitant]
  6. BACTRIM [Concomitant]
  7. LACTOBACILLUS GG [Concomitant]
  8. MIRALAX [Concomitant]
  9. GANCICLOVIR SODIUM [Concomitant]

REACTIONS (3)
  - ACCIDENTAL OVERDOSE [None]
  - DRUG LEVEL INCREASED [None]
  - RENAL IMPAIRMENT [None]
